FAERS Safety Report 12233277 (Version 7)
Quarter: 2016Q4

REPORT INFORMATION
  Report Type: Report from Study
  Country: CA (occurrence: CA)
  Receive Date: 20160404
  Receipt Date: 20161124
  Transmission Date: 20170207
  Serious: Yes (Other)
  Sender: FDA-Public Use
  Company Number: CA-ROCHE-1246186

PATIENT
  Age: 56 Year
  Sex: Female
  Weight: 104.3 kg

DRUGS (18)
  1. ACETAMINOPHEN. [Concomitant]
     Active Substance: ACETAMINOPHEN
     Route: 048
     Dates: start: 20130128, end: 20160419
  2. METHYLPREDNISOLONE. [Concomitant]
     Active Substance: METHYLPREDNISOLONE
     Route: 042
     Dates: start: 20161108
  3. PLAQUENIL [Concomitant]
     Active Substance: HYDROXYCHLOROQUINE SULFATE
  4. RITUXAN [Suspect]
     Active Substance: RITUXIMAB
     Indication: RHEUMATOID ARTHRITIS
     Dosage: MOST RCENT DOSE ON 24/MAR/2014, 16/OCT/2014, 18/NOV/2014
     Route: 042
     Dates: start: 20130128
  5. DIPHENHYDRAMINE HCL [Concomitant]
     Active Substance: DIPHENHYDRAMINE HYDROCHLORIDE
     Route: 048
     Dates: start: 20130128, end: 20160419
  6. DIPHENHYDRAMINE HCL [Concomitant]
     Active Substance: DIPHENHYDRAMINE HYDROCHLORIDE
     Route: 048
     Dates: start: 20161108
  7. METHYLPREDNISOLONE. [Concomitant]
     Active Substance: METHYLPREDNISOLONE
     Route: 042
     Dates: start: 20130128, end: 20160419
  8. BABY ASPIRIN [Concomitant]
     Active Substance: ASPIRIN
  9. ADEMPAS [Concomitant]
     Active Substance: RIOCIGUAT
     Indication: PULMONARY HYPERTENSION
     Route: 065
     Dates: start: 20160314
  10. ACETAMINOPHEN. [Concomitant]
     Active Substance: ACETAMINOPHEN
     Route: 048
     Dates: start: 20161108
  11. INSULIN [Concomitant]
     Active Substance: INSULIN NOS
  12. ACTONEL [Concomitant]
     Active Substance: RISEDRONATE SODIUM
  13. NEXIUM [Concomitant]
     Active Substance: ESOMEPRAZOLE MAGNESIUM
  14. DIOVAN [Concomitant]
     Active Substance: VALSARTAN
  15. BOSENTAN. [Concomitant]
     Active Substance: BOSENTAN
     Indication: PULMONARY HYPERTENSION
  16. LIPITOR [Concomitant]
     Active Substance: ATORVASTATIN CALCIUM
  17. SYNTHROID [Concomitant]
     Active Substance: LEVOTHYROXINE SODIUM
  18. METFORMIN [Concomitant]
     Active Substance: METFORMIN HYDROCHLORIDE

REACTIONS (14)
  - Rheumatoid arthritis [Unknown]
  - Nasopharyngitis [Recovered/Resolved]
  - Oxygen saturation decreased [Unknown]
  - Blood iron decreased [Recovering/Resolving]
  - Thyroid function test abnormal [Unknown]
  - Hypotension [Unknown]
  - Allergy to chemicals [Not Recovered/Not Resolved]
  - Oxygen saturation decreased [Unknown]
  - Viral infection [Recovered/Resolved]
  - Lung infection [Unknown]
  - Nasopharyngitis [Unknown]
  - Pulmonary hypertension [Not Recovered/Not Resolved]
  - Arthralgia [Not Recovered/Not Resolved]
  - Pneumonia [Recovered/Resolved]

NARRATIVE: CASE EVENT DATE: 201306
